FAERS Safety Report 9614687 (Version 1)
Quarter: 2013Q4

REPORT INFORMATION
  Report Type: Spontaneous
  Country: US (occurrence: US)
  Receive Date: 20131011
  Receipt Date: 20131011
  Transmission Date: 20140711
  Serious: No
  Sender: FDA-Public Use
  Company Number: US-BAYER-2013-122118

PATIENT
  Age: 71 Year
  Sex: Female

DRUGS (3)
  1. NEXAVAR [Suspect]
     Indication: HEPATIC CANCER
     Dosage: 200 MG, BID
     Route: 048
     Dates: start: 2013, end: 2013
  2. NEXAVAR [Suspect]
     Indication: PANCREATIC CARCINOMA
     Dosage: UNK
     Route: 048
     Dates: start: 2013, end: 201309
  3. NEXAVAR [Suspect]
     Indication: GASTRIC CANCER
     Dosage: 200 MG, BID
     Route: 048
     Dates: start: 201309

REACTIONS (4)
  - Burning sensation [Recovering/Resolving]
  - Erythema [Recovering/Resolving]
  - Oral pain [Recovering/Resolving]
  - Pain in extremity [Recovering/Resolving]
